FAERS Safety Report 9277398 (Version 1)
Quarter: 2013Q2

REPORT INFORMATION
  Report Type: Spontaneous
  Country: US (occurrence: None)
  Receive Date: 20130503
  Receipt Date: 20130503
  Transmission Date: 20140414
  Serious: No
  Sender: FDA-Public Use
  Company Number: None

PATIENT
  Age: 62 Year
  Sex: Female

DRUGS (2)
  1. RIBAVIRIN [Suspect]
     Indication: CHRONIC HEPATITIS
     Route: 058
     Dates: start: 20130312, end: 20130401
  2. PEGASYS 180MCG GENENTECH [Suspect]
     Indication: CHRONIC HEPATITIS
     Route: 048
     Dates: start: 20130312, end: 20130401

REACTIONS (3)
  - Rash erythematous [None]
  - Inflammation [None]
  - Burning sensation [None]
